FAERS Safety Report 15702926 (Version 1)
Quarter: 2018Q4

REPORT INFORMATION
  Report Type: Spontaneous
  Country: US (occurrence: US)
  Receive Date: 20181127
  Receipt Date: 20181127
  Transmission Date: 20190205
  Serious: Yes (Death, Hospitalization)
  Sender: FDA-Public Use
  Company Number: None

PATIENT
  Age: 27 Year
  Sex: Male
  Weight: 107.3 kg

DRUGS (5)
  1. METHOTREXATE. [Suspect]
     Active Substance: METHOTREXATE
     Dates: end: 20160606
  2. DEXAMETHASONE. [Suspect]
     Active Substance: DEXAMETHASONE
     Dates: end: 20160606
  3. CYTARABINE. [Suspect]
     Active Substance: CYTARABINE
     Dates: end: 20160616
  4. ONCASPAR [Suspect]
     Active Substance: PEGASPARGASE
  5. VINCRISTINE SULFATE. [Suspect]
     Active Substance: VINCRISTINE SULFATE
     Dates: end: 20160606

REACTIONS (9)
  - Metabolic acidosis [None]
  - Respiratory distress [None]
  - Cardiac arrest [None]
  - Disseminated intravascular coagulation [None]
  - Septic shock [None]
  - Hepatic failure [None]
  - Lactic acidosis [None]
  - Respiratory failure [None]
  - Anuria [None]

NARRATIVE: CASE EVENT DATE: 20160623
